FAERS Safety Report 20351266 (Version 1)
Quarter: 2022Q1

REPORT INFORMATION
  Report Type: Spontaneous
  Country: US (occurrence: None)
  Receive Date: 20220118
  Receipt Date: 20220118
  Transmission Date: 20220424
  Serious: Yes (Life-Threatening)
  Sender: FDA-Public Use
  Company Number: None

PATIENT
  Age: 33 Year
  Sex: Female
  Weight: 87.5 kg

DRUGS (6)
  1. BAMLANIVIMAB [Suspect]
     Active Substance: BAMLANIVIMAB
     Indication: COVID-19
     Dosage: OTHER FREQUENCY : ONCE;?
     Route: 041
     Dates: start: 20220116, end: 20220116
  2. ETESEVIMAB [Suspect]
     Active Substance: ETESEVIMAB
     Indication: COVID-19
     Dosage: OTHER FREQUENCY : ONCE;?
     Route: 041
     Dates: start: 20220116, end: 20220116
  3. ACETAMINOPHEN [Concomitant]
     Active Substance: ACETAMINOPHEN
     Dates: start: 20220116, end: 20220116
  4. AZITHROMYCIN [Concomitant]
     Active Substance: AZITHROMYCIN
     Dates: start: 20220116, end: 20220116
  5. Betamethasone inj [Concomitant]
     Dates: start: 20220116, end: 20220116
  6. CEFTRIAXONE [Concomitant]
     Active Substance: CEFTRIAXONE
     Dates: start: 20220116, end: 20220116

REACTIONS (6)
  - Infusion related reaction [None]
  - Dyspnoea [None]
  - Maternal exposure during pregnancy [None]
  - Maternal drugs affecting foetus [None]
  - Foetal heart rate abnormal [None]
  - Caesarean section [None]

NARRATIVE: CASE EVENT DATE: 20220116
